FAERS Safety Report 8371187-3 (Version None)
Quarter: 2012Q2

REPORT INFORMATION
  Report Type: 
  Country: None (occurrence: None)
  Receive Date: 20120517
  Receipt Date: 20120504
  Transmission Date: 20120825
  Serious: Yes (Hospitalization, Disabling, Other)
  Sender: FDA-Public Use
  Company Number: AUR-APL-2011-01138

PATIENT
  Age: 70 Year
  Sex: Male
  Weight: 106.5 kg

DRUGS (41)
  1. METOPROLOL TARTRATE [Suspect]
     Indication: HYPERTENSION
     Dosage: 50 MG (25 MG, 2 IN 1 D), ORAL
     Route: 048
     Dates: start: 20090101
  2. XALATAN [Suspect]
     Indication: PRODUCT USED FOR UNKNOWN INDICATION
     Dosage: OPHTHALMIC
     Route: 047
  3. PROSCAR [Suspect]
     Indication: PRODUCT USED FOR UNKNOWN INDICATION
  4. BILBERRY (VACCINIUM MYRTILLUS) [Concomitant]
  5. FOLIC ACID [Concomitant]
  6. METFORMIN HCL [Suspect]
     Indication: DIABETES MELLITUS
     Dosage: (500 MG)
     Dates: start: 20101018
  7. IBUPROFEN (ADVIL) [Suspect]
     Indication: PAIN
     Dosage: (200 MG, AS REQUIRED)
     Dates: end: 20110301
  8. TRAMADOL HCL [Suspect]
     Indication: PRODUCT USED FOR UNKNOWN INDICATION
  9. CODEINE [Suspect]
     Indication: PRODUCT USED FOR UNKNOWN INDICATION
  10. CYCLOSPORINE [Suspect]
     Indication: PRODUCT USED FOR UNKNOWN INDICATION
  11. OXYCODONE HCL [Suspect]
  12. LANTUS [Concomitant]
  13. PLAVIX [Suspect]
     Indication: PRODUCT USED FOR UNKNOWN INDICATION
  14. COREG [Suspect]
     Indication: CARDIAC DISORDER
  15. MOTRIN [Suspect]
     Indication: PRODUCT USED FOR UNKNOWN INDICATION
  16. VICODIN [Suspect]
  17. ASPIRIN [Concomitant]
  18. DIGOXIN [Concomitant]
  19. ISTALOL (TIMOLOL MALEATE) [Concomitant]
  20. CLOZAPINE [Suspect]
  21. LIPITOR [Suspect]
     Indication: PRODUCT USED FOR UNKNOWN INDICATION
  22. ZOCOR [Suspect]
     Indication: PRODUCT USED FOR UNKNOWN INDICATION
  23. ZETIA [Suspect]
     Indication: PRODUCT USED FOR UNKNOWN INDICATION
  24. POTASSIUM CHLORIDE [Concomitant]
  25. FUROSEMIDE [Concomitant]
  26. PILOCARPINE [Concomitant]
  27. LUMIGAN [Suspect]
  28. VIAGRA [Suspect]
     Indication: PRODUCT USED FOR UNKNOWN INDICATION
  29. GLUCOPHAGE [Suspect]
     Indication: PRODUCT USED FOR UNKNOWN INDICATION
  30. THERA TEARS (CARMELLOSE) [Concomitant]
  31. DIAZEPAM [Concomitant]
  32. TOPROL-XL [Suspect]
     Indication: PRODUCT USED FOR UNKNOWN INDICATION
  33. PROZAC [Suspect]
     Indication: PRODUCT USED FOR UNKNOWN INDICATION
  34. LUVOX [Suspect]
     Indication: PRODUCT USED FOR UNKNOWN INDICATION
  35. LOSARTAN POTASSIUM [Concomitant]
  36. ALPRAZOLAM [Suspect]
     Indication: PRODUCT USED FOR UNKNOWN INDICATION
  37. REGLAN [Suspect]
     Indication: PRODUCT USED FOR UNKNOWN INDICATION
  38. LOTRIMIN [Suspect]
     Indication: PRODUCT USED FOR UNKNOWN INDICATION
  39. PRAVASTATIN [Suspect]
  40. FISH OIL [Concomitant]
  41. ALLOPURINOL [Concomitant]

REACTIONS (12)
  - NAUSEA [None]
  - MYALGIA [None]
  - ABASIA [None]
  - FATIGUE [None]
  - ASTHENIA [None]
  - BACK PAIN [None]
  - SKIN IRRITATION [None]
  - DYSPNOEA [None]
  - CONSTIPATION [None]
  - SLEEP DISORDER [None]
  - BLOOD GLUCOSE INCREASED [None]
  - VOMITING [None]
